FAERS Safety Report 18157156 (Version 1)
Quarter: 2020Q3

REPORT INFORMATION
  Report Type: Spontaneous
  Country: US (occurrence: US)
  Receive Date: 20200817
  Receipt Date: 20200817
  Transmission Date: 20201103
  Serious: Yes (Other)
  Sender: FDA-Public Use
  Company Number: None

PATIENT
  Age: 16 Year
  Sex: Female
  Weight: 63 kg

DRUGS (2)
  1. DDAVP [Suspect]
     Active Substance: DESMOPRESSIN ACETATE
     Indication: DIABETES INSIPIDUS
     Dosage: ?          QUANTITY:3 SPRAY(S);?
     Route: 055
     Dates: start: 20141103, end: 20200814
  2. JUNEL FE 1/20 [Concomitant]
     Active Substance: ETHINYL ESTRADIOL\NORETHINDRONE ACETATE

REACTIONS (6)
  - Epistaxis [None]
  - Lethargy [None]
  - Headache [None]
  - Syncope [None]
  - Malaise [None]
  - Administration site haemorrhage [None]

NARRATIVE: CASE EVENT DATE: 20200711
